FAERS Safety Report 7532936-7 (Version None)
Quarter: 2011Q2

REPORT INFORMATION
  Report Type: 
  Country: None (occurrence: None)
  Receive Date: 20110607
  Receipt Date: 20110607
  Transmission Date: 20111010
  Serious: Yes (Death)
  Sender: FDA-Public Use
  Company Number: None

PATIENT
  Age: 84 Year
  Sex: 0
  Weight: 63.5036 kg

DRUGS (2)
  1. SEROQUEL [Suspect]
     Indication: DELUSION
     Dosage: LOW DOSE BEFORE SLEEP PO
     Route: 048
     Dates: start: 20041001, end: 20050201
  2. SEROQUEL [Suspect]
     Indication: INSOMNIA
     Dosage: LOW DOSE BEFORE SLEEP PO
     Route: 048
     Dates: start: 20041001, end: 20050201

REACTIONS (1)
  - NEUROLEPTIC MALIGNANT SYNDROME [None]
